FAERS Safety Report 23152065 (Version 2)
Quarter: 2024Q1

REPORT INFORMATION
  Report Type: Report from Study
  Country: US (occurrence: US)
  Receive Date: 20231107
  Receipt Date: 20240212
  Transmission Date: 20240410
  Serious: Yes (Hospitalization, Other)
  Sender: FDA-Public Use
  Company Number: US-ABBVIE-5478708

PATIENT
  Sex: Male

DRUGS (1)
  1. HUMIRA [Suspect]
     Active Substance: ADALIMUMAB
     Indication: Hidradenitis
     Dosage: FORM STRENGTH: 40 MILLIGRAM CITRATE FREE
     Route: 058
     Dates: start: 20230927

REACTIONS (7)
  - Haemorrhage [Unknown]
  - Anaemia [Unknown]
  - Headache [Unknown]
  - Hidradenitis [Not Recovered/Not Resolved]
  - Blood iron decreased [Unknown]
  - Dizziness [Unknown]
  - Infection [Unknown]

NARRATIVE: CASE EVENT DATE: 20230101
